FAERS Safety Report 6950691-6 (Version None)
Quarter: 2010Q3

REPORT INFORMATION
  Report Type: 
  Country: None (occurrence: None)
  Receive Date: 20100828
  Receipt Date: 20100218
  Transmission Date: 20110219
  Serious: No
  Sender: FDA-Public Use
  Company Number: US-ABBOTT-10P-163-0628216-00

PATIENT
  Sex: Male
  Weight: 111.23 kg

DRUGS (3)
  1. NIASPAN [Suspect]
     Indication: BLOOD CHOLESTEROL INCREASED
     Dates: start: 20100209
  2. TRILIPIX [Concomitant]
     Indication: BLOOD CHOLESTEROL INCREASED
     Dates: start: 20090301
  3. LOVAZA [Concomitant]
     Indication: THYROID DISORDER

REACTIONS (2)
  - PRURITUS [None]
  - URTICARIA [None]
